FAERS Safety Report 9788675 (Version 1)
Quarter: 2013Q4

REPORT INFORMATION
  Report Type: Spontaneous
  Country: US (occurrence: US)
  Receive Date: 20131230
  Receipt Date: 20131230
  Transmission Date: 20140711
  Serious: No
  Sender: FDA-Public Use
  Company Number: US-ASTRAZENECA-2013SE73657

PATIENT
  Age: 78 Year
  Sex: Male
  Weight: 64.9 kg

DRUGS (5)
  1. BRILINTA [Suspect]
     Indication: STENT PLACEMENT
     Route: 048
     Dates: start: 20130106
  2. DIOVAN HCT [Concomitant]
  3. SIMVASTATIN [Concomitant]
  4. ZALATAN [Concomitant]
     Indication: GLAUCOMA
  5. BABY ASPIRIN [Concomitant]

REACTIONS (1)
  - Joint injury [Unknown]
